FAERS Safety Report 11589072 (Version 1)
Quarter: 2015Q4

REPORT INFORMATION
  Report Type: Spontaneous
  Country: US (occurrence: US)
  Receive Date: 20151002
  Receipt Date: 20151002
  Transmission Date: 20160304
  Serious: No
  Sender: FDA-Public Use
  Company Number: US-PFIZER INC-2015326341

PATIENT
  Sex: Female

DRUGS (3)
  1. SAXENDA [Concomitant]
     Active Substance: LIRAGLUTIDE
     Indication: BLOOD CHOLESTEROL INCREASED
     Dosage: UNK
  2. LYRICA [Suspect]
     Active Substance: PREGABALIN
     Indication: FIBROMYALGIA
     Dosage: UNK
  3. SAXENDA [Concomitant]
     Active Substance: LIRAGLUTIDE
     Indication: FIBROMYALGIA

REACTIONS (1)
  - Drug effect incomplete [Unknown]
